FAERS Safety Report 10950827 (Version 1)
Quarter: 2015Q1

REPORT INFORMATION
  Report Type: Spontaneous
  Country: US (occurrence: None)
  Receive Date: 20150226
  Receipt Date: 20150226
  Transmission Date: 20150721
  Serious: Yes (Other)
  Sender: FDA-Public Use
  Company Number: TPA2010A03342

PATIENT
  Age: 11 Year
  Sex: Female

DRUGS (2)
  1. PREVACID [Suspect]
     Active Substance: LANSOPRAZOLE
     Indication: GASTROOESOPHAGEAL REFLUX DISEASE
  2. CEPHALOSPORIN [Suspect]
     Active Substance: UNSPECIFIED INGREDIENT

REACTIONS (3)
  - Urticaria [None]
  - Eye swelling [None]
  - Hypersensitivity [None]
